FAERS Safety Report 7771483-4 (Version None)
Quarter: 2011Q3

REPORT INFORMATION
  Report Type: 
  Country: None (occurrence: None)
  Receive Date: 20110922
  Receipt Date: 20110207
  Transmission Date: 20111222
  Serious: Yes (Hospitalization)
  Sender: FDA-Public Use
  Company Number: US-ASTRAZENECA-2011SE06985

PATIENT
  Age: 44 Year
  Sex: Female
  Weight: 106.1 kg

DRUGS (1)
  1. SEROQUEL XR [Suspect]
     Indication: BIPOLAR DISORDER
     Route: 048
     Dates: start: 20070101, end: 20100901

REACTIONS (3)
  - SUICIDAL IDEATION [None]
  - DISEASE RECURRENCE [None]
  - INSOMNIA [None]
